FAERS Safety Report 11922504 (Version 1)
Quarter: 2016Q1

REPORT INFORMATION
  Report Type: Other
  Country: ES (occurrence: ES)
  Receive Date: 20160115
  Receipt Date: 20160115
  Transmission Date: 20160526
  Serious: Yes (Other)
  Sender: FDA-Public Use
  Company Number: ES-NSR_02304_2016

PATIENT
  Age: 82 Year
  Sex: Female

DRUGS (4)
  1. TRAMADOL. [Suspect]
     Active Substance: TRAMADOL
     Indication: PRODUCT USED FOR UNKNOWN INDICATION
     Dosage: DF
  2. SERTRALINE [Suspect]
     Active Substance: SERTRALINE HYDROCHLORIDE
     Indication: PRODUCT USED FOR UNKNOWN INDICATION
     Dosage: DF
  3. OLANZAPINE. [Suspect]
     Active Substance: OLANZAPINE
     Indication: DEPRESSION
     Dosage: DF
     Route: 048
  4. OLANZAPINE. [Suspect]
     Active Substance: OLANZAPINE
     Indication: PARKINSON^S DISEASE
     Dosage: DF
     Route: 048

REACTIONS (4)
  - Diarrhoea [Recovering/Resolving]
  - Parkinsonism [Recovering/Resolving]
  - Hypertension [Recovering/Resolving]
  - Hallucination [Recovering/Resolving]

NARRATIVE: CASE EVENT DATE: 2003
